FAERS Safety Report 7713341-7 (Version None)
Quarter: 2011Q3

REPORT INFORMATION
  Report Type: 
  Country: None (occurrence: None)
  Receive Date: 20110826
  Receipt Date: 20110822
  Transmission Date: 20111222
  Serious: Yes (Other)
  Sender: FDA-Public Use
  Company Number: CHPA2011US11307

PATIENT
  Age: 67 Year
  Sex: Male
  Weight: 90.703 kg

DRUGS (2)
  1. BENEFIBER W/ WHEAT DEXTRIN [Suspect]
     Indication: CONSTIPATION
     Dosage: 2 TSP, TID
     Route: 048
     Dates: start: 20110801
  2. DRUG THERAPY NOS [Concomitant]

REACTIONS (4)
  - DIARRHOEA [None]
  - OFF LABEL USE [None]
  - NAUSEA [None]
  - DECREASED APPETITE [None]
